FAERS Safety Report 23939787 (Version 2)
Quarter: 2024Q2

REPORT INFORMATION
  Report Type: Report from Study
  Country: US (occurrence: US)
  Receive Date: 20240605
  Receipt Date: 20240605
  Transmission Date: 20240716
  Serious: No
  Sender: FDA-Public Use
  Company Number: US-002147023-NVSC2020US264165

PATIENT
  Age: 10 Year
  Sex: Male

DRUGS (4)
  1. OMNITROPE [Suspect]
     Active Substance: SOMATROPIN
     Dosage: 1.9 MG, OTHER ((DAILY FOR SIX DAYS PER WEEK))
     Route: 058
  2. OMNITROPE [Suspect]
     Active Substance: SOMATROPIN
     Dosage: 1.9 MG, OTHER ((DAILY FOR SIX DAYS PER WEEK))
     Route: 058
  3. OMNITROPE [Suspect]
     Active Substance: SOMATROPIN
     Indication: Hypopituitarism
     Dosage: UNK
     Route: 065
     Dates: start: 20200928
  4. OMNITROPE [Suspect]
     Active Substance: SOMATROPIN
     Indication: Hypopituitarism
     Dosage: UNK
     Route: 065
     Dates: start: 20200928

REACTIONS (3)
  - Incorrect dose administered [Unknown]
  - Product dose omission issue [Unknown]
  - Needle issue [Unknown]

NARRATIVE: CASE EVENT DATE: 20200928
